FAERS Safety Report 10074662 (Version 2)
Quarter: 2014Q2

REPORT INFORMATION
  Report Type: Spontaneous
  Country: CA (occurrence: CA)
  Receive Date: 20140414
  Receipt Date: 20140428
  Transmission Date: 20141212
  Serious: Yes (Other)
  Sender: FDA-Public Use
  Company Number: CA-ROCHE-1377788

PATIENT
  Age: 74 Year
  Sex: Male

DRUGS (3)
  1. CATHFLO ACTIVASE [Suspect]
     Indication: DEVICE OCCLUSION
     Dosage: SINGLE DOSE,
     Route: 050
     Dates: start: 20140402, end: 20140402
  2. CEFTRIAXONE [Suspect]
     Indication: PRODUCT USED FOR UNKNOWN INDICATION
     Route: 065
     Dates: end: 20140402
  3. VANCOMYCIN [Suspect]
     Indication: PRODUCT USED FOR UNKNOWN INDICATION
     Route: 065
     Dates: end: 20140402

REACTIONS (5)
  - Dyspnoea [Unknown]
  - Lip swelling [Unknown]
  - Confusional state [Unknown]
  - Rash [Unknown]
  - Pharyngeal oedema [Unknown]
